FAERS Safety Report 4287267-8 (Version None)
Quarter: 2004Q1

REPORT INFORMATION
  Report Type: 
  Country: None (occurrence: None)
  Receive Date: 20040126
  Receipt Date: 20030811
  Transmission Date: 20041129
  Serious: Yes (Other)
  Sender: FDA-Public Use
  Company Number: USA030843952

PATIENT
  Age: 69 Year
  Sex: Female
  Weight: 64 kg

DRUGS (16)
  1. PROZAC [Suspect]
  2. FORTEO [Suspect]
     Dates: start: 20030701
  3. FIBER [Concomitant]
  4. ZANTAC [Concomitant]
  5. LIPITOR [Concomitant]
  6. DYAZIDE [Concomitant]
  7. ATACAND [Concomitant]
  8. XANAX [Concomitant]
  9. VITAMIN B COMPLEX CAP [Concomitant]
  10. VITAMIN E [Concomitant]
  11. MULTI-VITAMIN [Concomitant]
  12. GLUCOSAMINE CHONDROITIN [Concomitant]
  13. TYLENOL [Concomitant]
  14. TEMAZEPAM [Concomitant]
  15. PRILOSEC [Concomitant]
  16. FOSAMAX [Concomitant]

REACTIONS (3)
  - ANAEMIA [None]
  - DYSGEUSIA [None]
  - FAECAL OCCULT BLOOD POSITIVE [None]
